FAERS Safety Report 17074635 (Version 1)
Quarter: 2019Q4

REPORT INFORMATION
  Report Type: Spontaneous
  Country: GB (occurrence: GB)
  Receive Date: 20191126
  Receipt Date: 20191126
  Transmission Date: 20200122
  Serious: No
  Sender: FDA-Public Use
  Company Number: GB-DRREDDYS-USA/UKI/19/0116273

PATIENT
  Sex: Male

DRUGS (4)
  1. OLANZAPINE TABLETS 2.5 MG, 5 MG, 7.5 MG, 10 MG [Suspect]
     Active Substance: OLANZAPINE
     Indication: SCHIZOPHRENIA
     Dosage: AT NIGHT
     Dates: start: 2016, end: 2016
  2. LORAZEPAM INJECTION USP, 2 MG/ML AND 4 MG/ML [Concomitant]
     Active Substance: LORAZEPAM
     Indication: SCHIZOPHRENIA
     Route: 030
     Dates: start: 2016
  3. ZOPICLONE [Concomitant]
     Active Substance: ZOPICLONE
     Indication: SCHIZOPHRENIA
     Dosage: AT NIGHT
     Dates: start: 201607
  4. MIRTAZAPINE. [Concomitant]
     Active Substance: MIRTAZAPINE
     Indication: SCHIZOPHRENIA
     Dosage: AT NIGHT
     Dates: start: 201607

REACTIONS (1)
  - Sedation [Recovered/Resolved]
